FAERS Safety Report 7959828-3 (Version None)
Quarter: 2011Q4

REPORT INFORMATION
  Report Type: 
  Country: None (occurrence: None)
  Receive Date: 20111206
  Receipt Date: 20111201
  Transmission Date: 20120403
  Serious: Yes (Death)
  Sender: FDA-Public Use
  Company Number: US-PFIZER INC-2011294339

PATIENT
  Sex: Female
  Weight: 100.68 kg

DRUGS (2)
  1. AMLODIPINE AND ATORVASTATIN [Suspect]
     Indication: HYPERTENSION
     Dosage: 10 MG/80 MG, 1X/DAY
     Route: 048
     Dates: start: 20061117
  2. AMLODIPINE AND ATORVASTATIN [Suspect]
     Indication: HYPERLIPIDAEMIA

REACTIONS (1)
  - ACUTE MYOCARDIAL INFARCTION [None]
